FAERS Safety Report 9120108 (Version 2)
Quarter: 2013Q1

REPORT INFORMATION
  Report Type: Spontaneous
  Country: US (occurrence: US)
  Receive Date: 20130226
  Receipt Date: 20130228
  Transmission Date: 20140127
  Serious: No
  Sender: FDA-Public Use
  Company Number: US-009507513-1302USA010951

PATIENT
  Sex: Male

DRUGS (4)
  1. AZASITE [Suspect]
     Indication: BACTERIAL INFECTION
     Dosage: 1% DROPS, 1 BOTTLE OF 2.5, INSTILL 1 DROP IN AFFECTED EYES DAILY
     Route: 047
     Dates: start: 20120125
  2. COSOPT [Concomitant]
     Indication: GLAUCOMA
     Route: 047
  3. ALPHAGAN P [Concomitant]
     Indication: GLAUCOMA
     Route: 047
  4. LUMIGAN [Concomitant]
     Indication: GLAUCOMA
     Route: 047

REACTIONS (3)
  - Drug dose omission [Not Recovered/Not Resolved]
  - Product quality issue [Unknown]
  - No adverse event [Unknown]
